FAERS Safety Report 8219386-5 (Version None)
Quarter: 2012Q1

REPORT INFORMATION
  Report Type: 
  Country: None (occurrence: None)
  Receive Date: 20120319
  Receipt Date: 20120309
  Transmission Date: 20120608
  Serious: Yes (Other)
  Sender: FDA-Public Use
  Company Number: PHHY2012PL020758

PATIENT
  Sex: Female
  Weight: 58 kg

DRUGS (1)
  1. METHOTREXATE [Suspect]
     Indication: RHEUMATOID ARTHRITIS
     Dosage: 20 MG, QW
     Route: 048
     Dates: start: 20110101, end: 20120206

REACTIONS (4)
  - ABDOMINAL PAIN [None]
  - DRUG INTOLERANCE [None]
  - ASTHENIA [None]
  - NAUSEA [None]
